FAERS Safety Report 9287802 (Version 1)
Quarter: 2013Q2

REPORT INFORMATION
  Report Type: Spontaneous
  Country: US (occurrence: US)
  Receive Date: 20130514
  Receipt Date: 20130514
  Transmission Date: 20140414
  Serious: No
  Sender: FDA-Public Use
  Company Number: US-PFIZER INC-2013145593

PATIENT
  Age: 48 Year
  Sex: Female

DRUGS (1)
  1. ZOSYN [Suspect]
     Indication: MASTITIS
     Dosage: UNK, 4X/DAY
     Route: 042
     Dates: start: 20130419

REACTIONS (1)
  - Tooth discolouration [Unknown]
